FAERS Safety Report 17369568 (Version 1)
Quarter: 2020Q1

REPORT INFORMATION
  Report Type: Spontaneous
  Country: CA (occurrence: CA)
  Receive Date: 20200204
  Receipt Date: 20200204
  Transmission Date: 20200409
  Serious: Yes (Hospitalization)
  Sender: FDA-Public Use
  Company Number: CA-TEVA-2020-CA-1178485

PATIENT
  Age: 38 Year
  Sex: Female

DRUGS (8)
  1. CIPROFLOXACIN. [Suspect]
     Active Substance: CIPROFLOXACIN
     Indication: PRODUCT USED FOR UNKNOWN INDICATION
     Route: 065
  2. FLAGYL [Suspect]
     Active Substance: METRONIDAZOLE\METRONIDAZOLE HYDROCHLORIDE
     Indication: PRODUCT USED FOR UNKNOWN INDICATION
     Route: 065
  3. MIDAZOLAM HYDROCHLORIDE. [Suspect]
     Active Substance: MIDAZOLAM HYDROCHLORIDE
     Indication: SEDATION
     Route: 042
  4. SACCHARATED IRON OXIDE [Suspect]
     Active Substance: IRON SUCROSE
     Indication: PRODUCT USED FOR UNKNOWN INDICATION
     Route: 065
  5. INFLIXIMAB [Suspect]
     Active Substance: INFLIXIMAB
     Indication: CROHN^S DISEASE
     Route: 065
  6. FENTANYL. [Suspect]
     Active Substance: FENTANYL
     Indication: SEDATION
     Route: 042
  7. HUMIRA [Suspect]
     Active Substance: ADALIMUMAB
     Indication: PRODUCT USED FOR UNKNOWN INDICATION
     Route: 058
  8. SOLU-MEDROL [Suspect]
     Active Substance: METHYLPREDNISOLONE SODIUM SUCCINATE
     Indication: PRODUCT USED FOR UNKNOWN INDICATION
     Route: 065

REACTIONS (23)
  - Frequent bowel movements [Unknown]
  - Gastrointestinal scarring [Unknown]
  - Anorectal ulcer [Unknown]
  - Decreased appetite [Unknown]
  - Deformity [Unknown]
  - Pyelonephritis [Unknown]
  - Attention deficit/hyperactivity disorder [Unknown]
  - C-reactive protein decreased [Unknown]
  - Non-consummation [Unknown]
  - Pain [Unknown]
  - Gastrointestinal disorder [Unknown]
  - Systemic inflammatory response syndrome [Unknown]
  - Fibrosis [Unknown]
  - Crohn^s disease [Unknown]
  - Hyperhidrosis [Unknown]
  - Colitis [Unknown]
  - Depression [Unknown]
  - Female genital tract fistula [Unknown]
  - Iron deficiency anaemia [Unknown]
  - Abdominal pain [Unknown]
  - Diarrhoea [Unknown]
  - Large intestinal stenosis [Unknown]
  - Pyrexia [Unknown]
